FAERS Safety Report 24087987 (Version 1)
Quarter: 2024Q3

REPORT INFORMATION
  Report Type: Spontaneous
  Country: JP (occurrence: JP)
  Receive Date: 20240715
  Receipt Date: 20240715
  Transmission Date: 20241017
  Serious: Yes (Disabling, Other)
  Sender: NOVO NORDISK
  Company Number: JP-NOVOPROD-1246232

PATIENT
  Age: 69 Year
  Sex: Female

DRUGS (3)
  1. TRESIBA [Suspect]
     Active Substance: INSULIN DEGLUDEC
     Indication: Pancreatogenous diabetes
     Dosage: 8 IU, QD
     Dates: start: 2016
  2. APIDRA [Suspect]
     Active Substance: INSULIN GLULISINE
     Dosage: 14 IU, QD (5-4-5)
  3. APIDRA [Suspect]
     Active Substance: INSULIN GLULISINE
     Indication: Pancreatogenous diabetes
     Dosage: 28 IU, QD (10-8-10)
     Dates: start: 2016

REACTIONS (2)
  - Muscular weakness [Not Recovered/Not Resolved]
  - Hypoglycaemia [Recovered/Resolved]
